FAERS Safety Report 8757990 (Version 1)
Quarter: 2012Q4

REPORT INFORMATION
  Report Type: 
  Country: US (occurrence: US)
  Receive Date: 20120828
  Receipt Date: 20120828
  Transmission Date: 20130627
  Serious: Yes (Hospitalization)
  Sender: FDA-Public Use
  Company Number: US-AMGEN-USASP2012053534

PATIENT
  Age: 52 Year
  Sex: Female

DRUGS (8)
  1. NPLATE [Suspect]
     Indication: IDIOPATHIC THROMBOCYTOPENIC PURPURA
     Dosage: UNK UNK, qwk
     Route: 058
  2. ADVAIR [Concomitant]
  3. FOLIC ACID [Concomitant]
  4. CELEXA                             /00582602/ [Concomitant]
  5. PRILOSEC                           /00661201/ [Concomitant]
  6. OXYCODONE [Concomitant]
  7. METOPROLOL [Concomitant]
  8. VALIUM /00017001/ [Concomitant]

REACTIONS (1)
  - Posterior reversible encephalopathy syndrome [Unknown]
